FAERS Safety Report 7354817-4 (Version None)
Quarter: 2011Q1

REPORT INFORMATION
  Report Type: 
  Country: None (occurrence: None)
  Receive Date: 20110311
  Receipt Date: 20110311
  Transmission Date: 20110831
  Serious: Yes (Life-Threatening, Hospitalization, Disabling, Other)
  Sender: FDA-Public Use
  Company Number: None

PATIENT
  Age: 58 Year
  Sex: Male
  Weight: 78.9259 kg

DRUGS (2)
  1. GEMCITABINE [Suspect]
     Indication: PANCREATIC CARCINOMA
     Dosage: 1 DRIP WEEKLY 1/DRIPS
     Dates: start: 20101001
  2. TARCEVA [Suspect]
     Indication: PANCREATIC CARCINOMA
     Dosage: 1 DAILY EVERYDAY
     Dates: start: 20101001

REACTIONS (6)
  - RENAL FAILURE [None]
  - PYREXIA [None]
  - POISONING [None]
  - LUNG DISORDER [None]
  - OEDEMA PERIPHERAL [None]
  - CARDIAC DISORDER [None]
